FAERS Safety Report 7970449-9 (Version None)
Quarter: 2011Q4

REPORT INFORMATION
  Report Type: 
  Country: None (occurrence: None)
  Receive Date: 20111212
  Receipt Date: 20111205
  Transmission Date: 20120403
  Serious: No
  Sender: FDA-Public Use
  Company Number: PHEH2011US011098

PATIENT
  Sex: Female

DRUGS (12)
  1. ACETAMINOPHEN [Concomitant]
     Dosage: UNK UKN, UNK
  2. CLINDAMYCIN HCL [Concomitant]
     Dosage: UNK UKN, UNK
  3. TASIGNA [Suspect]
     Indication: LEUKAEMIA IN REMISSION
     Dosage: 400 MG, BID
     Route: 048
     Dates: start: 20111205
  4. LISINOPRIL [Concomitant]
  5. PROMETHAZINE HCL [Concomitant]
     Dosage: UNK UKN, UNK
  6. LORATADINE [Concomitant]
     Dosage: UNK UKN, UNK
  7. TUSSIONEX [Concomitant]
     Dosage: UNK UKN, UNK
  8. RANITIDINE [Concomitant]
     Dosage: UNK UKN, UNK
  9. NASONEX [Concomitant]
     Dosage: UNK UKN, UNK
  10. LORTAB [Concomitant]
     Dosage: UNK UKN, UNK
  11. FIBER [Concomitant]
     Dosage: UNK UKN, UNK
  12. MULTIVITAMIN [Concomitant]
     Dosage: UNK UKN, UNK

REACTIONS (4)
  - ALOPECIA [None]
  - COUGH [None]
  - PRURITUS [None]
  - RHINORRHOEA [None]
